FAERS Safety Report 24587633 (Version 1)
Quarter: 2024Q4

REPORT INFORMATION
  Report Type: Spontaneous
  Country: FR (occurrence: FR)
  Receive Date: 20241107
  Receipt Date: 20241107
  Transmission Date: 20250114
  Serious: Yes (Hospitalization)
  Sender: BOEHRINGER INGELHEIM
  Company Number: None

PATIENT
  Age: 92 Year
  Sex: Female
  Weight: 55.7 kg

DRUGS (16)
  1. JARDIANCE [Suspect]
     Active Substance: EMPAGLIFLOZIN
     Indication: Cardiac failure
     Route: 048
     Dates: start: 20240402, end: 20240419
  2. ELIQUIS [Concomitant]
     Active Substance: APIXABAN
     Indication: Atrial fibrillation
     Route: 048
  3. LORAZEPAM VIATRIS 1 mg, comprim? pellicul? s?cable [Concomitant]
     Indication: Mixed anxiety and depressive disorder
     Route: 048
  4. MIRTAZAPINE ALMUS 15 mg, comprim? orodispersible [Concomitant]
     Indication: Mixed anxiety and depressive disorder
     Route: 048
  5. NEURONTIN [Concomitant]
     Active Substance: GABAPENTIN
     Indication: Product used for unknown indication
     Route: 048
  6. FUROSEMIDE [Concomitant]
     Active Substance: FUROSEMIDE
     Indication: Hypertension
     Route: 048
  7. BUSPIRONE MYLAN 10 mg, comprim? s?cable [Concomitant]
     Indication: Mixed anxiety and depressive disorder
     Route: 048
  8. CANDESARTAN BIOGARAN 8 mg, comprim? s?cable [Concomitant]
     Indication: Hypertension
     Route: 048
  9. SKENAN [Concomitant]
     Active Substance: MORPHINE SULFATE
     Indication: Pain
     Route: 048
  10. VALPROATE SODIUM [Concomitant]
     Active Substance: VALPROATE SODIUM
     Indication: Bipolar I disorder
     Route: 048
  11. POTASSIUM CHLORIDE [Concomitant]
     Active Substance: POTASSIUM CHLORIDE
     Indication: Hypokalaemia
     Route: 048
  12. BISOPROLOL [Concomitant]
     Active Substance: BISOPROLOL\BISOPROLOL FUMARATE
     Indication: Hypertension
     Route: 048
  13. MOVICOL [Concomitant]
     Active Substance: POLYETHYLENE GLYCOL 3350\POTASSIUM CHLORIDE\SODIUM BICARBONATE\SODIUM CHLORIDE
     Indication: Constipation
     Route: 048
  14. PARACETAMOL ZENTIVA 1000 mg, comprim? [Concomitant]
     Indication: Pain
     Route: 048
  15. GEL LARMES, gel ophtalmique en r?cipient unidose [Concomitant]
     Indication: Dry eye
     Route: 047
  16. GLYCERIN\MINERAL OIL\PETROLATUM [Concomitant]
     Active Substance: GLYCERIN\MINERAL OIL\PETROLATUM
     Indication: Dry skin
     Route: 003

REACTIONS (1)
  - Escherichia pyelonephritis [Recovered/Resolved]

NARRATIVE: CASE EVENT DATE: 20240418
